FAERS Safety Report 11737994 (Version 1)
Quarter: 2015Q4

REPORT INFORMATION
  Report Type: Spontaneous
  Country: US (occurrence: None)
  Receive Date: 20151112
  Receipt Date: 20151112
  Transmission Date: 20160304
  Serious: Yes (Hospitalization, Other)
  Sender: FDA-Public Use
  Company Number: None

PATIENT
  Age: 59 Year
  Sex: Female
  Weight: 61.24 kg

DRUGS (11)
  1. K-TAB [Concomitant]
     Active Substance: POTASSIUM CHLORIDE
  2. LISINOPRIL. [Concomitant]
     Active Substance: LISINOPRIL
  3. ROCALTROL [Concomitant]
     Active Substance: CALCITRIOL
  4. NORCO [Concomitant]
     Active Substance: ACETAMINOPHEN\HYDROCODONE BITARTRATE
  5. SERTRALINE [Concomitant]
     Active Substance: SERTRALINE HYDROCHLORIDE
  6. OMEPRAZOLE. [Concomitant]
     Active Substance: OMEPRAZOLE
  7. DIPHENHYDRAMINE. [Concomitant]
     Active Substance: DIPHENHYDRAMINE
  8. PREPARATION H NOS [Concomitant]
     Active Substance: COCOA BUTTER\PETROLATUM\PHENYLEPHRINE HYDROCHLORIDE\PHENYLEPHRINE HYDROCHLORIDE OR MINERAL OIL
  9. MOTRIN [Concomitant]
     Active Substance: IBUPROFEN
  10. VENOFER [Suspect]
     Active Substance: IRON SUCROSE
     Indication: IRON DEFICIENCY ANAEMIA
     Dosage: INFUSED 90 MINUTES
  11. PRENATAL VITAMIN [Concomitant]
     Active Substance: VITAMINS

REACTIONS (13)
  - Pain in extremity [None]
  - Peripheral swelling [None]
  - Feeling cold [None]
  - Burning sensation [None]
  - Pallor [None]
  - Dizziness [None]
  - Nausea [None]
  - Abasia [None]
  - Vomiting [None]
  - Arthralgia [None]
  - Retching [None]
  - Hyperhidrosis [None]
  - Infusion related reaction [None]

NARRATIVE: CASE EVENT DATE: 20151109
